FAERS Safety Report 8344617-0 (Version None)
Quarter: 2012Q2

REPORT INFORMATION
  Report Type: 
  Country: None (occurrence: None)
  Receive Date: 20120508
  Receipt Date: 20120427
  Transmission Date: 20120825
  Serious: Yes (Other)
  Sender: FDA-Public Use
  Company Number: US-JNJFOC-20110412475

PATIENT
  Sex: Male
  Weight: 120.2 kg

DRUGS (11)
  1. NEOSPORIN [Suspect]
     Indication: SKIN LESION
     Route: 061
     Dates: start: 20110423, end: 20110423
  2. NEOSPORIN [Suspect]
     Route: 061
     Dates: start: 20110423, end: 20110423
  3. NEOSPORIN [Suspect]
     Dosage: JUST A LITTLE BIT AT THE TIP OF FINGER
     Route: 061
     Dates: start: 20110418
  4. NEXIUM [Concomitant]
     Indication: ULCER
     Route: 048
     Dates: start: 20010101
  5. NEXIUM [Concomitant]
     Indication: GASTROOESOPHAGEAL REFLUX DISEASE
     Route: 048
     Dates: start: 20010101
  6. PROAIR HFA [Concomitant]
     Indication: PRODUCT USED FOR UNKNOWN INDICATION
     Dosage: 90 MCG, TWO PUFFS EVERY FOUR TO SIX HOURS AS NEEDED
     Route: 055
  7. ADVAIR DISKUS 100/50 [Concomitant]
     Indication: CHRONIC OBSTRUCTIVE PULMONARY DISEASE
     Dosage: 250-50 MCG, ONE PUFF IN THE MORNING AND EVENING
     Route: 055
  8. NEOSPORIN [Suspect]
     Indication: TANNING
     Dosage: JUST A LITTLE BIT AT THE TIP OF FINGER
     Route: 061
     Dates: start: 20110418
  9. NEOSPORIN [Suspect]
     Indication: SCAR
     Dosage: JUST A LITTLE BIT AT THE TIP OF FINGER
     Route: 061
     Dates: start: 20110418
  10. NEOSPORIN [Suspect]
     Route: 061
     Dates: start: 20110423, end: 20110423
  11. CLARINEX [Concomitant]
     Indication: PRODUCT USED FOR UNKNOWN INDICATION
     Dosage: 250-50 MCG, ONE PUFF IN THE MORNING AND EVENING
     Route: 048

REACTIONS (22)
  - GENERAL SYMPTOM [None]
  - SKIN EXFOLIATION [None]
  - NOSE DEFORMITY [None]
  - NERVOUSNESS [None]
  - WOUND [None]
  - STRESS [None]
  - OFF LABEL USE [None]
  - WEIGHT DECREASED [None]
  - SUNBURN [None]
  - PHOTOSENSITIVITY REACTION [None]
  - INSOMNIA [None]
  - ANXIETY [None]
  - ANGER [None]
  - APPLICATION SITE INFECTION [None]
  - ULCER [None]
  - EMOTIONAL DISORDER [None]
  - BLISTER [None]
  - SCAB [None]
  - PSYCHIATRIC SYMPTOM [None]
  - CHEST DISCOMFORT [None]
  - OROPHARYNGEAL PAIN [None]
  - PRODUCT QUALITY ISSUE [None]
